FAERS Safety Report 7391019-X (Version None)
Quarter: 2011Q2

REPORT INFORMATION
  Report Type: 
  Country: None (occurrence: None)
  Receive Date: 20110404
  Receipt Date: 20110329
  Transmission Date: 20111010
  Serious: No
  Sender: FDA-Public Use
  Company Number: US-PFIZER INC-2011050644

PATIENT
  Sex: Male

DRUGS (5)
  1. ADVIL CONGESTION RELIEF [Suspect]
     Indication: NASAL OEDEMA
     Dosage: 200 MG, 1X/DAY
     Route: 048
     Dates: start: 20110201, end: 20110201
  2. ADVIL ALLERGY SINUS [Suspect]
     Dosage: UNK
  3. ADVIL CONGESTION RELIEF [Suspect]
     Indication: NASAL CONGESTION
  4. XYZAL [Suspect]
     Indication: HYPERSENSITIVITY
     Dosage: 5 MG, 1X/DAY
     Route: 048
  5. SINGULAIR [Suspect]
     Indication: HYPERSENSITIVITY
     Dosage: 10 MG, DAILY
     Route: 048

REACTIONS (2)
  - DRUG INEFFECTIVE [None]
  - NASAL OEDEMA [None]
